FAERS Safety Report 6516720-9 (Version None)
Quarter: 2009Q4

REPORT INFORMATION
  Report Type: 
  Country: None (occurrence: None)
  Receive Date: 20091223
  Receipt Date: 20091030
  Transmission Date: 20100525
  Serious: No
  Sender: FDA-Public Use
  Company Number: A0810969A

PATIENT
  Sex: Female

DRUGS (1)
  1. RYTHMOL [Suspect]
     Indication: DRUG USE FOR UNKNOWN INDICATION
     Dosage: 150MG THREE TIMES PER DAY
     Route: 048

REACTIONS (3)
  - MEMORY IMPAIRMENT [None]
  - SOMNOLENCE [None]
  - TREATMENT NONCOMPLIANCE [None]
